FAERS Safety Report 4350856-6 (Version None)
Quarter: 2004Q2

REPORT INFORMATION
  Report Type: 
  Country: None (occurrence: None)
  Receive Date: 20040428
  Receipt Date: 20040419
  Transmission Date: 20050107
  Serious: No
  Sender: FDA-Public Use
  Company Number: 2004UW03644

PATIENT
  Age: 50 Year
  Sex: Female

DRUGS (4)
  1. CRESTOR [Suspect]
     Dosage: 10 MG DAILY PO
     Route: 048
  2. GLUCOPHAGE [Concomitant]
  3. LASIX [Concomitant]
  4. LISINOPRIL [Concomitant]

REACTIONS (4)
  - BACTERIURIA [None]
  - DIABETIC NEPHROPATHY [None]
  - RENAL FAILURE ACUTE [None]
  - URINARY TRACT INFECTION [None]
